FAERS Safety Report 11512620 (Version 17)
Quarter: 2020Q4

REPORT INFORMATION
  Report Type: Other
  Country: DE (occurrence: DE)
  Receive Date: 20150916
  Receipt Date: 20201212
  Transmission Date: 20210113
  Serious: Yes (Hospitalization, Other)
  Sender: FDA-Public Use
  Company Number: DE-ROCHE-1587446

PATIENT
  Age: 77 Year
  Sex: Female
  Weight: 80 kg

DRUGS (18)
  1. MARCUMAR [Suspect]
     Active Substance: PHENPROCOUMON
     Indication: PRODUCT USED FOR UNKNOWN INDICATION
     Route: 065
  2. VIGANTOLETTEN [Concomitant]
     Active Substance: CHOLECALCIFEROL
  3. TORASEMID [Concomitant]
     Active Substance: TORSEMIDE
     Route: 065
  4. PANTOPRAZOL [Concomitant]
     Active Substance: PANTOPRAZOLE SODIUM
     Route: 065
  5. TORASEMID [Concomitant]
     Active Substance: TORSEMIDE
     Indication: HYPERTENSION
     Route: 065
  6. HYDROCHLOROTHIAZIDE. [Concomitant]
     Active Substance: HYDROCHLOROTHIAZIDE
  7. BISOPROLOL [Concomitant]
     Active Substance: BISOPROLOL
     Route: 065
  8. KALINOR [Concomitant]
  9. VALSACOR [Concomitant]
     Active Substance: VALSARTAN
     Route: 065
  10. VOLTAREN [Concomitant]
     Active Substance: DICLOFENAC SODIUM
  11. L-THYROXIN [Concomitant]
     Active Substance: LEVOTHYROXINE SODIUM
     Dosage: TREATMENT AFTER THYROID SURGERY
     Route: 065
  12. VIGANTOLETTEN [Concomitant]
     Active Substance: CHOLECALCIFEROL
  13. METHOTREXATE. [Concomitant]
     Active Substance: METHOTREXATE
     Route: 058
     Dates: start: 2002
  14. CORTISONE [Concomitant]
     Active Substance: CORTISONE
     Dosage: AS REQUIRED
  15. ROACTEMRA [Suspect]
     Active Substance: TOCILIZUMAB
     Indication: RHEUMATOID ARTHRITIS
     Dosage: ON THURSDAYS
     Route: 058
     Dates: start: 20150513, end: 20201101
  16. METHOTREXATE. [Concomitant]
     Active Substance: METHOTREXATE
     Indication: RHEUMATOID ARTHRITIS
     Dosage: ON TUESDAYS
     Route: 058
     Dates: start: 2002
  17. NOVAMINSULFON [Concomitant]
     Active Substance: METAMIZOLE
     Dosage: AS REQUIRED
  18. L-THYROXIN [Concomitant]
     Active Substance: LEVOTHYROXINE SODIUM
     Route: 065

REACTIONS (34)
  - Dizziness [Recovered/Resolved]
  - Arthralgia [Recovered/Resolved]
  - Intervertebral disc protrusion [Recovering/Resolving]
  - Blood pressure fluctuation [Recovered/Resolved]
  - Weight increased [Recovered/Resolved]
  - Liver function test increased [Recovered/Resolved]
  - Mass [Not Recovered/Not Resolved]
  - Cardiac valve disease [Unknown]
  - Nasopharyngitis [Not Recovered/Not Resolved]
  - Joint swelling [Recovered/Resolved]
  - Pain in extremity [Recovered/Resolved]
  - Arthritis [Recovered/Resolved]
  - Back pain [Recovering/Resolving]
  - Rheumatoid arthritis [Recovering/Resolving]
  - Therapeutic product effect decreased [Unknown]
  - White blood cell count increased [Recovered/Resolved]
  - Dyspnoea [Not Recovered/Not Resolved]
  - Glossodynia [Recovered/Resolved]
  - Cardiac ablation [Recovered/Resolved]
  - Joint swelling [Recovered/Resolved]
  - Musculoskeletal stiffness [Not Recovered/Not Resolved]
  - Arthralgia [Recovering/Resolving]
  - Arthralgia [Recovered/Resolved]
  - Peripheral swelling [Recovered/Resolved]
  - Urinary tract infection [Recovered/Resolved]
  - Pneumonia [Recovering/Resolving]
  - Nausea [Recovered/Resolved]
  - Paraesthesia [Not Recovered/Not Resolved]
  - Injection site swelling [Recovered/Resolved]
  - General physical health deterioration [Not Recovered/Not Resolved]
  - Blood uric acid increased [Recovered/Resolved]
  - Paraesthesia [Not Recovered/Not Resolved]
  - Contusion [Recovered/Resolved]
  - Muscle twitching [Not Recovered/Not Resolved]

NARRATIVE: CASE EVENT DATE: 20150513
